FAERS Safety Report 11064305 (Version 3)
Quarter: 2015Q3

REPORT INFORMATION
  Report Type: Spontaneous
  Country: US (occurrence: US)
  Receive Date: 20150424
  Receipt Date: 20150715
  Transmission Date: 20151125
  Serious: Yes (Hospitalization)
  Sender: FDA-Public Use
  Company Number: US-INCYTE CORPORATION-2015IN001544

PATIENT
  Age: 56 Year
  Sex: Male

DRUGS (7)
  1. JAKAFI [Suspect]
     Active Substance: RUXOLITINIB
     Indication: MYELOFIBROSIS
     Dosage: 10 MG, BID
     Route: 048
     Dates: start: 20150201
  2. COREG [Concomitant]
     Active Substance: CARVEDILOL
  3. VITAMIN B12 [Concomitant]
     Active Substance: CYANOCOBALAMIN
  4. TUMS                               /00193601/ [Concomitant]
     Active Substance: CALCIUM CARBONATE\MAGNESIUM CARBONATE\MAGNESIUM TRISILICATE
  5. COUMADIN [Concomitant]
     Active Substance: WARFARIN SODIUM
  6. HYDROXYUREA. [Concomitant]
     Active Substance: HYDROXYUREA
  7. LEVOXYL [Concomitant]
     Active Substance: LEVOTHYROXINE SODIUM

REACTIONS (10)
  - Haematocrit decreased [Unknown]
  - Amnesia [Recovering/Resolving]
  - Platelet count increased [Unknown]
  - Blood count abnormal [Unknown]
  - International normalised ratio increased [Unknown]
  - Migraine [Recovering/Resolving]
  - Dysarthria [Recovering/Resolving]
  - Vertigo [Recovering/Resolving]
  - Confusional state [Recovering/Resolving]
  - Vision blurred [Recovering/Resolving]

NARRATIVE: CASE EVENT DATE: 201504
